FAERS Safety Report 15768520 (Version 1)
Quarter: 2018Q4

REPORT INFORMATION
  Report Type: Spontaneous
  Country: US (occurrence: US)
  Receive Date: 20181227
  Receipt Date: 20181227
  Transmission Date: 20190205
  Serious: No
  Sender: FDA-Public Use
  Company Number: US-JNJFOC-20181133768

PATIENT
  Sex: Female

DRUGS (10)
  1. ASCORBIC ACID. [Concomitant]
     Active Substance: ASCORBIC ACID
  2. VITAMIN B12 [Concomitant]
     Active Substance: CYANOCOBALAMIN
  3. GARLIC. [Concomitant]
     Active Substance: GARLIC
  4. COD LIVER OIL [Concomitant]
     Active Substance: COD LIVER OIL
  5. BROMSITE [Concomitant]
     Active Substance: BROMFENAC SODIUM
  6. IMBRUVICA [Suspect]
     Active Substance: IBRUTINIB
     Indication: CHRONIC LYMPHOCYTIC LEUKAEMIA
     Route: 065
  7. VITAMIN D2 [Concomitant]
     Active Substance: ERGOCALCIFEROL
  8. FISH OIL [Concomitant]
     Active Substance: FISH OIL
  9. THERAGRAN [Concomitant]
     Active Substance: VITAMINS
  10. VITAMIN B COMPLEX [Concomitant]
     Active Substance: CYANOCOBALAMIN\DEXPANTHENOL\NIACINAMIDE\PYRIDOXINE HYDROCHLORIDE\RIBOFLAVIN 5^-PHOSPHATE SODIUM\THIAMINE HYDROCHLORIDE\VITAMIN B COMPLEX

REACTIONS (6)
  - Off label use [Unknown]
  - Hypercholesterolaemia [Unknown]
  - Incorrect dose administered [Unknown]
  - Impaired fasting glucose [Unknown]
  - Cataract [Unknown]
  - Vitamin D deficiency [Unknown]
